FAERS Safety Report 6813244-6 (Version None)
Quarter: 2010Q3

REPORT INFORMATION
  Report Type: 
  Country: None (occurrence: None)
  Receive Date: 20100701
  Receipt Date: 20100628
  Transmission Date: 20110219
  Serious: Yes (Death, Life-Threatening, Other)
  Sender: FDA-Public Use
  Company Number: JP-ROXANE LABORATORIES, INC.-2010-RO-00772RO

PATIENT
  Age: 80 Year
  Sex: Female
  Weight: 39.7 kg

DRUGS (10)
  1. DEXAMETHASONE [Suspect]
     Indication: ASTHMA
     Dosage: 4 MG
     Route: 042
  2. DEXAMETHASONE [Suspect]
     Dosage: 8 MG
     Route: 042
  3. DEXAMETHASONE [Suspect]
     Dosage: 4 MG
     Route: 042
  4. CORTICOSTEROID [Suspect]
     Indication: ASTHMA
     Route: 055
  5. PREDNISOLONE [Suspect]
     Indication: ASTHMA
     Dosage: 7.5 MG
     Route: 048
  6. AMINOPHYLLINE [Suspect]
     Dosage: 125 MG
  7. HEPARIN [Suspect]
     Indication: DISSEMINATED INTRAVASCULAR COAGULATION
     Route: 042
  8. GANCICLOVIR [Suspect]
     Indication: DISSEMINATED CYTOMEGALOVIRAL INFECTION
  9. IMMUNE GLOBULIN NOS [Suspect]
     Indication: DISSEMINATED CYTOMEGALOVIRAL INFECTION
  10. TRANEXAMIC ACID [Suspect]
     Indication: HISTIOCYTOSIS HAEMATOPHAGIC

REACTIONS (10)
  - CYSTITIS HAEMORRHAGIC [None]
  - DEHYDRATION [None]
  - DISSEMINATED CYTOMEGALOVIRAL INFECTION [None]
  - DISSEMINATED INTRAVASCULAR COAGULATION [None]
  - HISTIOCYTOSIS HAEMATOPHAGIC [None]
  - LYMPHOPENIA [None]
  - MELAENA [None]
  - PNEUMONIA [None]
  - PSEUDOMONAS TEST POSITIVE [None]
  - RESPIRATORY FAILURE [None]
